FAERS Safety Report 6600993-8 (Version None)
Quarter: 2010Q1

REPORT INFORMATION
  Report Type: 
  Country: None (occurrence: None)
  Receive Date: 20100225
  Receipt Date: 20100203
  Transmission Date: 20100710
  Serious: Yes (Other)
  Sender: FDA-Public Use
  Company Number: US-SANOFI-AVENTIS-2009SA008105

PATIENT
  Age: 66 Year
  Sex: Male

DRUGS (2)
  1. OPTICLICK [Suspect]
     Dates: start: 20060101
  2. LANTUS [Suspect]
     Dates: start: 20010101

REACTIONS (1)
  - DEVICE MALFUNCTION [None]
